FAERS Safety Report 19819253 (Version 2)
Quarter: 2021Q4

REPORT INFORMATION
  Report Type: Spontaneous
  Country: US (occurrence: US)
  Receive Date: 20210913
  Receipt Date: 20211013
  Transmission Date: 20220304
  Serious: No
  Sender: FDA-Public Use
  Company Number: US-SA-SAC20210908000917

PATIENT
  Age: 55 Year
  Sex: Female

DRUGS (2)
  1. AUBAGIO [Suspect]
     Active Substance: TERIFLUNOMIDE
     Indication: Multiple sclerosis
     Dosage: 14 MG, QD
     Route: 048
     Dates: start: 20200121
  2. MIRTAZAPINE [Concomitant]
     Active Substance: MIRTAZAPINE

REACTIONS (3)
  - Balance disorder [Not Recovered/Not Resolved]
  - Movement disorder [Unknown]
  - Fall [Unknown]

NARRATIVE: CASE EVENT DATE: 20211003
